FAERS Safety Report 5238947-9 (Version None)
Quarter: 2007Q1

REPORT INFORMATION
  Report Type: 
  Country: None (occurrence: None)
  Receive Date: 20070209
  Receipt Date: 20061228
  Transmission Date: 20070707
  Serious: Yes (Death)
  Sender: FDA-Public Use
  Company Number: 20063065

PATIENT
  Sex: Male

DRUGS (5)
  1. LIORESAL [Suspect]
     Indication: MUSCLE SPASTICITY
     Dosage: UNK MCG, DAILY, INTRATHECAL
     Route: 037
  2. DILAUDID [Concomitant]
  3. CLONIDINE [Concomitant]
  4. BUPIVACAINE [Concomitant]
  5. DROPERIDOL [Concomitant]

REACTIONS (3)
  - ILL-DEFINED DISORDER [None]
  - NO THERAPEUTIC RESPONSE [None]
  - PAIN [None]
